FAERS Safety Report 18434135 (Version 3)
Quarter: 2020Q4

REPORT INFORMATION
  Report Type: Spontaneous
  Country: BR (occurrence: BR)
  Receive Date: 20201027
  Receipt Date: 20201130
  Transmission Date: 20210114
  Serious: Yes (Other)
  Sender: FDA-Public Use
  Company Number: BR-TAKEDA-2020TUS044751

PATIENT
  Age: 64 Year
  Sex: Female

DRUGS (1)
  1. DEXILANT [Suspect]
     Active Substance: DEXLANSOPRAZOLE
     Indication: PRODUCT USED FOR UNKNOWN INDICATION
     Dosage: 30 MILLIGRAM
     Route: 065
     Dates: start: 20201016

REACTIONS (7)
  - Eye pruritus [Unknown]
  - Adverse event [Unknown]
  - Headache [Unknown]
  - Vomiting [Unknown]
  - Burning sensation [Unknown]
  - Palpitations [Unknown]
  - Monoplegia [Unknown]

NARRATIVE: CASE EVENT DATE: 20201016
